FAERS Safety Report 18728286 (Version 9)
Quarter: 2021Q2

REPORT INFORMATION
  Report Type: Spontaneous
  Country: NL (occurrence: NL)
  Receive Date: 20210111
  Receipt Date: 20210525
  Transmission Date: 20210717
  Serious: Yes (Other)
  Sender: FDA-Public Use
  Company Number: NL-BAUSCH-BL-2021-000392

PATIENT
  Age: 24 Year
  Sex: Female

DRUGS (25)
  1. BISACODYL. [Suspect]
     Active Substance: BISACODYL
     Dosage: THE PATIENT^S RECORD DOSING WAS 11
     Route: 048
  2. MOVICOL [Suspect]
     Active Substance: POLYETHYLENE GLYCOL 3350\POTASSIUM CHLORIDE\SODIUM BICARBONATE\SODIUM CHLORIDE
     Indication: CONSTIPATION
     Dosage: SACHETS, SINCE THE AGE OF APPROX. 14
     Route: 065
     Dates: start: 2010
  3. BISACODYL. [Suspect]
     Active Substance: BISACODYL
     Indication: CONSTIPATION
     Dosage: ON THE 2 DAYS IN BETWEEN (5MG TEVA)
     Route: 048
     Dates: start: 2012
  4. DULCOLAX NOS [Suspect]
     Active Substance: BISACODYL OR DOCUSATE SODIUM
     Indication: PRODUCT USED FOR UNKNOWN INDICATION
     Dosage: THE PATIENT^S RECORD DOSING IS 11(5MG TEVA)
     Route: 065
  5. BISACODYL. [Suspect]
     Active Substance: BISACODYL
     Dosage: 2 DOSAGE FORM, 2 DF, ON THE 2 DAYS IN BETWEEN
     Route: 048
     Dates: start: 2012
  6. MOVIPREP [Suspect]
     Active Substance: ASCORBIC ACID\POLYETHYLENE GLYCOL 3350\POTASSIUM CHLORIDE\SODIUM ASCORBATE\SODIUM CHLORIDE\SODIUM SULFATE
     Indication: PRODUCT USED FOR UNKNOWN INDICATION
     Route: 065
  7. KLEAN?PREP [Suspect]
     Active Substance: ELECTROLYTES NOS\POLYETHYLENE GLYCOL 3350
     Indication: PRODUCT USED FOR UNKNOWN INDICATION
     Route: 065
  8. PHOSPHORAL [FOSFOMYCIN TROMETAMOL] [Suspect]
     Active Substance: FOSFOMYCIN TROMETHAMINE
     Indication: CONSTIPATION
     Dosage: RINSING, APPROX. ONCE EVERY 2 MONTHS, SINCE THE AGE OF APPROX. 14
     Route: 065
  9. BISACODYL. [Suspect]
     Active Substance: BISACODYL
     Dosage: BETWEEN 6 AND 9 TABLETS AVERAGE
     Route: 048
     Dates: start: 2012
  10. BISACODYL. [Suspect]
     Active Substance: BISACODYL
     Route: 065
  11. BISACODYL. [Suspect]
     Active Substance: BISACODYL
     Indication: CONSTIPATION
     Dosage: B/W 6 AND 9 TABLETS, EVERY THIRD DAY, ON 2 DAYS IN B/W PATIENT USES 2 BISACODYL ONLY IN BAD PERI
     Route: 048
  12. COLEX [SODIUM PHOSPHATE DIBASIC;SODIUM PHOSPHATE MONOBASIC] [Suspect]
     Active Substance: SODIUM PHOSPHATE, DIBASIC\SODIUM PHOSPHATE, MONOBASIC
     Indication: CONSTIPATION
     Dosage: WHEN NECESSARY SINCE THE AGE OF APPROX 14
     Route: 054
  13. BISACODYL. [Suspect]
     Active Substance: BISACODYL
     Route: 065
  14. SODIUM PHOSPHATE [Suspect]
     Active Substance: SODIUM PHOSPHATE
     Indication: CONSTIPATION
     Dosage: 40 ML BOTTLES, SINCE THE AGE OF APPROX. 14 (RINSING, APPROX. ONCE EVERY 2 MONTHS).
     Route: 048
     Dates: start: 2010
  15. SODIUM PHOSPHATE [Suspect]
     Active Substance: SODIUM PHOSPHATE
     Dosage: ENEMA, PRN WHEN NECESSARY, SINCE THE AGE OF APPROX. 14
     Route: 054
     Dates: start: 2010
  16. LACTULOSE. [Suspect]
     Active Substance: LACTULOSE
     Indication: CONSTIPATION
     Dosage: SINCE THE AGE OF APPROX. 14
     Route: 065
     Dates: start: 2010
  17. MICROLAX (SODIUM CITRATE/SODIUM LAURYL SULFOACETATE) [Suspect]
     Active Substance: SODIUM CITRATE\SODIUM LAURYL SULFOACETATE
     Indication: PRODUCT USED FOR UNKNOWN INDICATION
     Route: 065
  18. PICOPREP [Suspect]
     Active Substance: ANHYDROUS CITRIC ACID\MAGNESIUM OXIDE\SODIUM PICOSULFATE
     Indication: COLONIC LAVAGE
     Dosage: PRN WHEN NECESSARY, SINCE THE AGE OF APPROX. 14
     Route: 065
  19. COLEXTRAN [Suspect]
     Active Substance: INVESTIGATIONAL PRODUCT
     Indication: CONSTIPATION
     Dosage: AS NEEDED
     Route: 065
  20. MACROGOL [Suspect]
     Active Substance: POLYETHYLENE GLYCOLS
     Indication: PRODUCT USED FOR UNKNOWN INDICATION
     Route: 065
  21. SODIUM PHOSPHATE [Suspect]
     Active Substance: SODIUM PHOSPHATE
     Dosage: PRN
     Route: 054
  22. FORLAX [Suspect]
     Active Substance: POLYETHYLENE GLYCOL 4000
     Indication: PRODUCT USED FOR UNKNOWN INDICATION
     Route: 065
  23. BISACODYL. [Suspect]
     Active Substance: BISACODYL
     Dosage: 6?9 TABLETS AVERAGE
     Route: 048
     Dates: start: 2012
  24. NATRIUMPHOSPHAT [PHOSPHORIC ACID\SODIUM PHOSPHATE, DIBASIC] [Suspect]
     Active Substance: PHOSPHORIC ACID\SODIUM PHOSPHATE, DIBASIC
     Indication: CONSTIPATION
     Dosage: 40 ML BOTTLES, SINCE THE AGE OF 14
     Route: 048
  25. COLEXKLYSMA [Suspect]
     Active Substance: PHOSPHORIC ACID\SODIUM PHOSPHATE, DIBASIC
     Indication: CONSTIPATION
     Dosage: WHEN NECESSARY SINCE THE AGE OF APPROX 14
     Route: 065

REACTIONS (34)
  - Adrenal disorder [Unknown]
  - Functional gastrointestinal disorder [Unknown]
  - Anticipatory anxiety [Unknown]
  - Burning sensation [Unknown]
  - Gastrointestinal pain [Unknown]
  - Syncope [Unknown]
  - Product supply issue [Unknown]
  - Gastrointestinal motility disorder [Unknown]
  - Weight increased [Unknown]
  - Condition aggravated [Unknown]
  - Constipation [Unknown]
  - Myalgia [Unknown]
  - Intentional product use issue [Unknown]
  - Swelling [Unknown]
  - Pain [Unknown]
  - Skin tightness [Unknown]
  - Abdominal discomfort [Unknown]
  - Dyspnoea [Unknown]
  - Brain oedema [Unknown]
  - Non-pitting oedema [Unknown]
  - Musculoskeletal stiffness [Unknown]
  - Skin texture abnormal [Unknown]
  - Ocular discomfort [Unknown]
  - Headache [Unknown]
  - Product residue present [Unknown]
  - Fluid retention [Unknown]
  - Paraesthesia [Unknown]
  - Pulmonary oedema [Unknown]
  - Drug ineffective [Unknown]
  - Unevaluable event [Unknown]
  - General physical health deterioration [Unknown]
  - Fear [Unknown]
  - Overdose [Unknown]
  - Overweight [Unknown]

NARRATIVE: CASE EVENT DATE: 2012
